FAERS Safety Report 20762983 (Version 10)
Quarter: 2025Q3

REPORT INFORMATION
  Report Type: Spontaneous
  Country: CA (occurrence: CA)
  Receive Date: 20220428
  Receipt Date: 20250901
  Transmission Date: 20251021
  Serious: Yes (Death, Congenital Anomaly, Other)
  Sender: Haleon PLC
  Company Number: CA-002147023-NVSC2022CA093732

PATIENT

DRUGS (273)
  1. DICLOFENAC [Suspect]
     Active Substance: DICLOFENAC
     Indication: Foetal exposure during pregnancy
     Route: 064
  2. DICLOFENAC [Suspect]
     Active Substance: DICLOFENAC
     Indication: Foetal exposure during pregnancy
     Route: 064
  3. DICLOFENAC [Suspect]
     Active Substance: DICLOFENAC
     Route: 064
  4. DICLOFENAC [Suspect]
     Active Substance: DICLOFENAC
     Route: 064
  5. DICLOFENAC [Suspect]
     Active Substance: DICLOFENAC
     Route: 064
  6. DICLOFENAC [Suspect]
     Active Substance: DICLOFENAC
     Route: 064
  7. DICLOFENAC [Suspect]
     Active Substance: DICLOFENAC
     Route: 064
  8. DICLOFENAC [Suspect]
     Active Substance: DICLOFENAC
     Route: 064
  9. DICLOFENAC [Suspect]
     Active Substance: DICLOFENAC
     Route: 064
  10. DICLOFENAC [Suspect]
     Active Substance: DICLOFENAC
     Route: 064
  11. DICLOFENAC [Suspect]
     Active Substance: DICLOFENAC
     Route: 064
  12. DICLOFENAC [Suspect]
     Active Substance: DICLOFENAC
     Route: 064
  13. PHTHALYLSULFATHIAZOLE [Suspect]
     Active Substance: PHTHALYLSULFATHIAZOLE
     Indication: Foetal exposure during pregnancy
     Route: 064
  14. PHTHALYLSULFATHIAZOLE [Suspect]
     Active Substance: PHTHALYLSULFATHIAZOLE
     Route: 064
  15. PHTHALYLSULFATHIAZOLE [Suspect]
     Active Substance: PHTHALYLSULFATHIAZOLE
     Route: 064
  16. PHTHALYLSULFATHIAZOLE [Suspect]
     Active Substance: PHTHALYLSULFATHIAZOLE
     Route: 064
  17. PHTHALYLSULFATHIAZOLE [Suspect]
     Active Substance: PHTHALYLSULFATHIAZOLE
     Route: 064
  18. PHTHALYLSULFATHIAZOLE [Suspect]
     Active Substance: PHTHALYLSULFATHIAZOLE
     Route: 064
  19. PHTHALYLSULFATHIAZOLE [Suspect]
     Active Substance: PHTHALYLSULFATHIAZOLE
     Route: 064
  20. GOLD [Suspect]
     Active Substance: GOLD
     Indication: Foetal exposure during pregnancy
     Route: 064
  21. COSENTYX [Suspect]
     Active Substance: SECUKINUMAB
     Indication: Foetal exposure during pregnancy
     Route: 064
  22. PERIOGARD [Suspect]
     Active Substance: CHLORHEXIDINE GLUCONATE
     Indication: Foetal exposure during pregnancy
     Route: 064
  23. DIPHENHYDRAMINE HYDROCHLORIDE [Suspect]
     Active Substance: DIPHENHYDRAMINE HYDROCHLORIDE
     Indication: Foetal exposure during pregnancy
     Route: 064
  24. DIPHENHYDRAMINE HYDROCHLORIDE [Suspect]
     Active Substance: DIPHENHYDRAMINE HYDROCHLORIDE
     Route: 064
  25. CETIRIZINE [Suspect]
     Active Substance: CETIRIZINE HYDROCHLORIDE
     Indication: Foetal exposure during pregnancy
     Route: 064
  26. CETIRIZINE [Suspect]
     Active Substance: CETIRIZINE HYDROCHLORIDE
     Route: 064
  27. CETIRIZINE [Suspect]
     Active Substance: CETIRIZINE HYDROCHLORIDE
     Route: 064
  28. CETIRIZINE [Suspect]
     Active Substance: CETIRIZINE HYDROCHLORIDE
     Route: 064
  29. PSEUDOEPHEDRINE [Suspect]
     Active Substance: PSEUDOEPHEDRINE
     Indication: Foetal exposure during pregnancy
  30. FLUMETHASONE PIVALATE [Suspect]
     Active Substance: FLUMETHASONE PIVALATE
     Indication: Foetal exposure during pregnancy
     Route: 064
  31. HUMIRA [Suspect]
     Active Substance: ADALIMUMAB
     Indication: Foetal exposure during pregnancy
     Route: 064
  32. HUMIRA [Suspect]
     Active Substance: ADALIMUMAB
     Route: 064
  33. HUMIRA [Suspect]
     Active Substance: ADALIMUMAB
     Route: 064
  34. HUMIRA [Suspect]
     Active Substance: ADALIMUMAB
     Route: 064
  35. HUMIRA [Suspect]
     Active Substance: ADALIMUMAB
     Route: 064
  36. HUMIRA [Suspect]
     Active Substance: ADALIMUMAB
     Route: 064
  37. HUMIRA [Suspect]
     Active Substance: ADALIMUMAB
     Route: 064
  38. MYOCHRYSINE [Suspect]
     Active Substance: GOLD SODIUM THIOMALATE
     Indication: Foetal exposure during pregnancy
     Route: 064
  39. CERTOLIZUMAB PEGOL [Suspect]
     Active Substance: CERTOLIZUMAB PEGOL
     Indication: Foetal exposure during pregnancy
     Route: 064
  40. HYDROCORTISONE [Suspect]
     Active Substance: HYDROCORTISONE
     Indication: Foetal exposure during pregnancy
     Route: 064
  41. SULFASALAZINE [Suspect]
     Active Substance: SULFASALAZINE
     Indication: Foetal exposure during pregnancy
     Route: 064
  42. SULFASALAZINE [Suspect]
     Active Substance: SULFASALAZINE
     Route: 064
  43. FOSAMAX [Suspect]
     Active Substance: ALENDRONATE SODIUM
     Indication: Foetal exposure during pregnancy
     Route: 064
  44. FOSAMAX [Suspect]
     Active Substance: ALENDRONATE SODIUM
     Route: 064
  45. FOSAMAX [Suspect]
     Active Substance: ALENDRONATE SODIUM
     Route: 064
  46. FOSAMAX [Suspect]
     Active Substance: ALENDRONATE SODIUM
     Route: 064
  47. FOSAMAX [Suspect]
     Active Substance: ALENDRONATE SODIUM
     Route: 064
  48. REMICADE [Suspect]
     Active Substance: INFLIXIMAB
     Indication: Foetal exposure during pregnancy
     Route: 064
  49. REMICADE [Suspect]
     Active Substance: INFLIXIMAB
     Route: 064
  50. REMICADE [Suspect]
     Active Substance: INFLIXIMAB
  51. REMICADE [Suspect]
     Active Substance: INFLIXIMAB
     Route: 064
  52. REMICADE [Suspect]
     Active Substance: INFLIXIMAB
     Route: 064
  53. REMICADE [Suspect]
     Active Substance: INFLIXIMAB
     Route: 064
  54. REMICADE [Suspect]
     Active Substance: INFLIXIMAB
     Route: 064
  55. REMICADE [Suspect]
     Active Substance: INFLIXIMAB
     Route: 064
  56. REMICADE [Suspect]
     Active Substance: INFLIXIMAB
     Route: 064
  57. PREDNISONE [Suspect]
     Active Substance: PREDNISONE
     Indication: Foetal exposure during pregnancy
     Route: 064
  58. PREDNISONE [Suspect]
     Active Substance: PREDNISONE
     Route: 064
  59. PREDNISONE [Suspect]
     Active Substance: PREDNISONE
     Route: 064
  60. PREDNISONE [Suspect]
     Active Substance: PREDNISONE
     Route: 064
  61. PREDNISONE [Suspect]
     Active Substance: PREDNISONE
     Route: 064
  62. PREDNISONE [Suspect]
     Active Substance: PREDNISONE
     Route: 064
  63. PREDNISONE [Suspect]
     Active Substance: PREDNISONE
     Route: 064
  64. DESOGESTREL and ETHINYLOESTRADIOL [Concomitant]
     Indication: Foetal exposure during pregnancy
     Route: 064
  65. HYDROCORTISONE [Suspect]
     Active Substance: HYDROCORTISONE
     Indication: Foetal exposure during pregnancy
     Route: 064
  66. PREDNISONE [Suspect]
     Active Substance: PREDNISONE
     Indication: Foetal exposure during pregnancy
     Route: 064
  67. ARAVA [Suspect]
     Active Substance: LEFLUNOMIDE
     Indication: Foetal exposure during pregnancy
     Route: 064
  68. ARAVA [Suspect]
     Active Substance: LEFLUNOMIDE
     Route: 064
  69. ARAVA [Suspect]
     Active Substance: LEFLUNOMIDE
     Route: 064
  70. METHOTREXATE [Suspect]
     Active Substance: METHOTREXATE
     Indication: Foetal exposure during pregnancy
     Route: 064
  71. METHOTREXATE [Suspect]
     Active Substance: METHOTREXATE
     Route: 064
  72. METHOTREXATE [Suspect]
     Active Substance: METHOTREXATE
     Route: 064
  73. METHOTREXATE [Suspect]
     Active Substance: METHOTREXATE
     Route: 064
  74. METHOTREXATE [Suspect]
     Active Substance: METHOTREXATE
     Route: 064
  75. METHOTREXATE [Suspect]
     Active Substance: METHOTREXATE
     Route: 064
  76. METHOTREXATE [Suspect]
     Active Substance: METHOTREXATE
     Route: 064
  77. METHOTREXATE [Suspect]
     Active Substance: METHOTREXATE
     Route: 064
  78. METHOTREXATE [Suspect]
     Active Substance: METHOTREXATE
     Route: 064
  79. METHOTREXATE [Suspect]
     Active Substance: METHOTREXATE
     Route: 064
  80. METHOTREXATE [Suspect]
     Active Substance: METHOTREXATE
     Route: 064
  81. METHOTREXATE [Suspect]
     Active Substance: METHOTREXATE
     Route: 064
  82. METHOTREXATE [Suspect]
     Active Substance: METHOTREXATE
     Route: 064
  83. METHOTREXATE [Suspect]
     Active Substance: METHOTREXATE
     Route: 064
  84. METHOTREXATE [Suspect]
     Active Substance: METHOTREXATE
     Route: 064
  85. METHOTREXATE [Suspect]
     Active Substance: METHOTREXATE
     Route: 064
  86. PANTOPRAZOLE [Concomitant]
     Active Substance: PANTOPRAZOLE
     Indication: Foetal exposure during pregnancy
     Route: 064
  87. SIMPONI [Suspect]
     Active Substance: GOLIMUMAB
     Indication: Foetal exposure during pregnancy
     Route: 064
  88. SIMPONI [Suspect]
     Active Substance: GOLIMUMAB
     Route: 064
  89. SIMPONI [Suspect]
     Active Substance: GOLIMUMAB
     Route: 064
  90. SIMPONI [Suspect]
     Active Substance: GOLIMUMAB
     Route: 064
  91. ALENDRONIC ACID [Suspect]
     Active Substance: ALENDRONIC ACID
     Indication: Foetal exposure during pregnancy
     Route: 064
  92. ALENDRONIC ACID [Suspect]
     Active Substance: ALENDRONIC ACID
     Indication: Foetal exposure during pregnancy
     Route: 064
  93. ALENDRONIC ACID [Suspect]
     Active Substance: ALENDRONIC ACID
     Route: 064
  94. ALENDRONIC ACID [Suspect]
     Active Substance: ALENDRONIC ACID
     Route: 064
  95. LEFLUNOMIDE [Suspect]
     Active Substance: LEFLUNOMIDE
     Indication: Foetal exposure during pregnancy
     Route: 064
  96. LEFLUNOMIDE [Suspect]
     Active Substance: LEFLUNOMIDE
     Route: 064
  97. LEFLUNOMIDE [Suspect]
     Active Substance: LEFLUNOMIDE
     Route: 064
  98. SULFASALAZINE [Suspect]
     Active Substance: SULFASALAZINE
     Indication: Foetal exposure during pregnancy
     Route: 064
  99. SULFASALAZINE [Suspect]
     Active Substance: SULFASALAZINE
     Route: 064
  100. SULFASALAZINE [Suspect]
     Active Substance: SULFASALAZINE
     Route: 064
  101. SULFASALAZINE [Suspect]
     Active Substance: SULFASALAZINE
     Route: 064
  102. SULFASALAZINE [Suspect]
     Active Substance: SULFASALAZINE
     Route: 064
  103. SULFASALAZINE [Suspect]
     Active Substance: SULFASALAZINE
     Route: 064
  104. SULFASALAZINE [Suspect]
     Active Substance: SULFASALAZINE
     Route: 064
  105. SULFASALAZINE [Suspect]
     Active Substance: SULFASALAZINE
     Route: 064
  106. SULFASALAZINE [Suspect]
     Active Substance: SULFASALAZINE
     Route: 064
  107. SULFASALAZINE [Suspect]
     Active Substance: SULFASALAZINE
     Route: 064
  108. SULFASALAZINE [Suspect]
     Active Substance: SULFASALAZINE
     Route: 064
  109. SULFASALAZINE [Suspect]
     Active Substance: SULFASALAZINE
     Route: 064
  110. SULFASALAZINE [Suspect]
     Active Substance: SULFASALAZINE
     Route: 064
  111. SULFASALAZINE [Suspect]
     Active Substance: SULFASALAZINE
     Route: 064
  112. DIPHENHYDRAMINE [Suspect]
     Active Substance: DIPHENHYDRAMINE
     Indication: Foetal exposure during pregnancy
     Route: 064
  113. CIMZIA [Suspect]
     Active Substance: CERTOLIZUMAB PEGOL
     Indication: Foetal exposure during pregnancy
     Route: 064
  114. CIMZIA [Suspect]
     Active Substance: CERTOLIZUMAB PEGOL
     Route: 064
  115. CIMZIA [Suspect]
     Active Substance: CERTOLIZUMAB PEGOL
     Route: 064
  116. CIMZIA [Suspect]
     Active Substance: CERTOLIZUMAB PEGOL
     Route: 064
  117. CIMZIA [Suspect]
     Active Substance: CERTOLIZUMAB PEGOL
     Route: 064
  118. CIMZIA [Suspect]
     Active Substance: CERTOLIZUMAB PEGOL
     Route: 064
  119. CIMZIA [Suspect]
     Active Substance: CERTOLIZUMAB PEGOL
     Route: 064
  120. PSEUDOEPHEDRINE HYDROCHLORIDE [Suspect]
     Active Substance: PSEUDOEPHEDRINE HYDROCHLORIDE
     Indication: Foetal exposure during pregnancy
     Route: 064
  121. PSEUDOEPHEDRINE HYDROCHLORIDE [Suspect]
     Active Substance: PSEUDOEPHEDRINE HYDROCHLORIDE
     Route: 064
  122. PSEUDOEPHEDRINE HYDROCHLORIDE [Suspect]
     Active Substance: PSEUDOEPHEDRINE HYDROCHLORIDE
     Route: 064
  123. ACTEMRA [Suspect]
     Active Substance: TOCILIZUMAB
     Indication: Foetal exposure during pregnancy
     Route: 064
  124. ACTEMRA [Suspect]
     Active Substance: TOCILIZUMAB
     Route: 064
  125. CETIRIZINE HYDROCHLORIDE [Suspect]
     Active Substance: CETIRIZINE HYDROCHLORIDE
     Indication: Foetal exposure during pregnancy
     Route: 064
  126. CETIRIZINE HYDROCHLORIDE [Suspect]
     Active Substance: CETIRIZINE HYDROCHLORIDE
     Route: 064
  127. CETIRIZINE HYDROCHLORIDE [Suspect]
     Active Substance: CETIRIZINE HYDROCHLORIDE
     Route: 064
  128. CETIRIZINE HYDROCHLORIDE [Suspect]
     Active Substance: CETIRIZINE HYDROCHLORIDE
     Route: 064
  129. CETIRIZINE HYDROCHLORIDE [Suspect]
     Active Substance: CETIRIZINE HYDROCHLORIDE
     Route: 064
  130. CODEINE [Concomitant]
     Active Substance: CODEINE
     Indication: Foetal exposure during pregnancy
     Route: 064
  131. IBUPROFEN [Concomitant]
     Active Substance: IBUPROFEN
     Indication: Foetal exposure during pregnancy
     Route: 064
  132. ADALIMUMAB [Suspect]
     Active Substance: ADALIMUMAB
     Indication: Foetal exposure during pregnancy
     Route: 064
  133. ADALIMUMAB [Suspect]
     Active Substance: ADALIMUMAB
     Route: 064
  134. PREDNISONE [Suspect]
     Active Substance: PREDNISONE
     Indication: Foetal exposure during pregnancy
     Route: 064
  135. PREDNISONE [Suspect]
     Active Substance: PREDNISONE
     Route: 064
  136. PREDNISONE [Suspect]
     Active Substance: PREDNISONE
     Route: 064
  137. TRAMADOL HYDROCHLORIDE [Suspect]
     Active Substance: TRAMADOL HYDROCHLORIDE
     Indication: Foetal exposure during pregnancy
     Route: 064
  138. QUETIAPINE FUMARATE [Concomitant]
     Active Substance: QUETIAPINE FUMARATE
     Indication: Foetal exposure during pregnancy
     Route: 064
  139. RAMIPRIL [Concomitant]
     Active Substance: RAMIPRIL
     Indication: Foetal exposure during pregnancy
     Route: 064
  140. ACETAMINOPHEN [Suspect]
     Active Substance: ACETAMINOPHEN
     Indication: Foetal exposure during pregnancy
     Route: 064
  141. ACETAMINOPHEN [Suspect]
     Active Substance: ACETAMINOPHEN
     Route: 064
  142. ACETAMINOPHEN [Suspect]
     Active Substance: ACETAMINOPHEN
     Route: 064
  143. CORTISONE ACETATE [Suspect]
     Active Substance: CORTISONE ACETATE
     Indication: Foetal exposure during pregnancy
     Route: 064
  144. CORTISONE ACETATE [Suspect]
     Active Substance: CORTISONE ACETATE
     Route: 064
  145. CORTISONE ACETATE [Suspect]
     Active Substance: CORTISONE ACETATE
     Route: 064
  146. CORTISONE ACETATE [Suspect]
     Active Substance: CORTISONE ACETATE
     Route: 064
  147. CORTISONE ACETATE [Suspect]
     Active Substance: CORTISONE ACETATE
     Route: 064
  148. CORTISONE ACETATE [Suspect]
     Active Substance: CORTISONE ACETATE
     Route: 064
  149. CORTISONE ACETATE [Suspect]
     Active Substance: CORTISONE ACETATE
     Route: 064
  150. CORTISONE ACETATE [Suspect]
     Active Substance: CORTISONE ACETATE
     Route: 064
  151. CORTISONE ACETATE [Suspect]
     Active Substance: CORTISONE ACETATE
     Route: 064
  152. CORTISONE ACETATE [Suspect]
     Active Substance: CORTISONE ACETATE
     Route: 064
  153. CORTISONE ACETATE [Suspect]
     Active Substance: CORTISONE ACETATE
     Route: 064
  154. CORTISONE ACETATE [Suspect]
     Active Substance: CORTISONE ACETATE
     Route: 064
  155. OTEZLA [Suspect]
     Active Substance: APREMILAST
     Indication: Foetal exposure during pregnancy
     Route: 064
  156. OTEZLA [Suspect]
     Active Substance: APREMILAST
     Route: 064
  157. OTEZLA [Suspect]
     Active Substance: APREMILAST
     Route: 064
  158. OTEZLA [Suspect]
     Active Substance: APREMILAST
     Route: 064
  159. SULFAMETHOXAZOLE\TRIMETHOPRIM [Suspect]
     Active Substance: SULFAMETHOXAZOLE\TRIMETHOPRIM
     Indication: Foetal exposure during pregnancy
     Route: 064
  160. STELARA [Suspect]
     Active Substance: USTEKINUMAB
     Indication: Foetal exposure during pregnancy
     Route: 064
  161. STELARA [Suspect]
     Active Substance: USTEKINUMAB
     Route: 064
  162. AZATHIOPRINE [Suspect]
     Active Substance: AZATHIOPRINE
     Indication: Foetal exposure during pregnancy
     Route: 064
  163. HYDROXYCHLOROQUINE SULFATE [Suspect]
     Active Substance: HYDROXYCHLOROQUINE SULFATE
     Indication: Foetal exposure during pregnancy
     Route: 064
  164. HYDROXYCHLOROQUINE SULFATE [Suspect]
     Active Substance: HYDROXYCHLOROQUINE SULFATE
     Route: 064
  165. HYDROXYCHLOROQUINE SULFATE [Suspect]
     Active Substance: HYDROXYCHLOROQUINE SULFATE
     Route: 064
  166. CAFFEINE CITRATE [Concomitant]
     Active Substance: CAFFEINE CITRATE
     Indication: Foetal exposure during pregnancy
     Route: 064
  167. CALCIUM GLUCONATE [Concomitant]
     Active Substance: CALCIUM GLUCONATE
     Indication: Foetal exposure during pregnancy
     Route: 064
  168. VITAMIN D3 [Suspect]
     Active Substance: CHOLECALCIFEROL
     Indication: Foetal exposure during pregnancy
     Route: 064
  169. VITAMIN D3 [Suspect]
     Active Substance: CHOLECALCIFEROL
     Route: 064
  170. VITAMIN D3 [Suspect]
     Active Substance: CHOLECALCIFEROL
     Route: 064
  171. ALENDRONATE SODIUM [Suspect]
     Active Substance: ALENDRONATE SODIUM
     Indication: Foetal exposure during pregnancy
     Route: 064
  172. ALENDRONATE SODIUM [Suspect]
     Active Substance: ALENDRONATE SODIUM
     Route: 064
  173. ALENDRONATE SODIUM [Suspect]
     Active Substance: ALENDRONATE SODIUM
     Route: 064
  174. ALENDRONATE SODIUM [Suspect]
     Active Substance: ALENDRONATE SODIUM
     Route: 064
  175. LISINOPRIL [Concomitant]
     Active Substance: LISINOPRIL
     Indication: Foetal exposure during pregnancy
     Route: 064
  176. XELJANZ [Suspect]
     Active Substance: TOFACITINIB CITRATE
     Indication: Foetal exposure during pregnancy
     Route: 064
  177. XELJANZ [Suspect]
     Active Substance: TOFACITINIB CITRATE
     Route: 064
  178. XELJANZ [Suspect]
     Active Substance: TOFACITINIB CITRATE
     Route: 064
  179. XELJANZ [Suspect]
     Active Substance: TOFACITINIB CITRATE
     Route: 064
  180. XELJANZ [Suspect]
     Active Substance: TOFACITINIB CITRATE
     Route: 064
  181. RITUXIMAB [Suspect]
     Active Substance: RITUXIMAB
     Indication: Foetal exposure during pregnancy
     Route: 064
  182. RITUXIMAB [Suspect]
     Active Substance: RITUXIMAB
     Route: 064
  183. RITUXIMAB [Suspect]
     Active Substance: RITUXIMAB
     Route: 064
  184. RITUXIMAB [Suspect]
     Active Substance: RITUXIMAB
     Route: 064
  185. RITUXIMAB [Suspect]
     Active Substance: RITUXIMAB
     Route: 064
  186. RITUXIMAB [Suspect]
     Active Substance: RITUXIMAB
     Route: 064
  187. RITUXIMAB [Suspect]
     Active Substance: RITUXIMAB
     Route: 064
  188. RITUXIMAB [Suspect]
     Active Substance: RITUXIMAB
     Route: 064
  189. GOLIMUMAB [Suspect]
     Active Substance: GOLIMUMAB
     Indication: Foetal exposure during pregnancy
     Route: 064
  190. GOLIMUMAB [Suspect]
     Active Substance: GOLIMUMAB
     Route: 064
  191. CETIRIZINE HYDROCHLORIDE\PSEUDOEPHEDRINE HYDROCHLORIDE [Suspect]
     Active Substance: CETIRIZINE HYDROCHLORIDE\PSEUDOEPHEDRINE HYDROCHLORIDE
     Indication: Foetal exposure during pregnancy
     Route: 064
  192. TOFACITINIB CITRATE [Concomitant]
     Active Substance: TOFACITINIB CITRATE
     Indication: Foetal exposure during pregnancy
     Route: 064
  193. ORENCIA [Suspect]
     Active Substance: ABATACEPT
     Indication: Foetal exposure during pregnancy
     Route: 064
  194. ORENCIA [Suspect]
     Active Substance: ABATACEPT
     Route: 064
  195. ORENCIA [Suspect]
     Active Substance: ABATACEPT
     Route: 064
  196. HYDROXYCHLOROQUINE [Suspect]
     Active Substance: HYDROXYCHLOROQUINE
     Indication: Foetal exposure during pregnancy
     Route: 064
  197. HYDROXYCHLOROQUINE [Suspect]
     Active Substance: HYDROXYCHLOROQUINE
     Route: 064
  198. HYDROXYCHLOROQUINE [Suspect]
     Active Substance: HYDROXYCHLOROQUINE
     Route: 064
  199. HYDROXYCHLOROQUINE [Suspect]
     Active Substance: HYDROXYCHLOROQUINE
     Route: 064
  200. HYDROXYCHLOROQUINE [Suspect]
     Active Substance: HYDROXYCHLOROQUINE
     Route: 064
  201. HYDROXYCHLOROQUINE [Suspect]
     Active Substance: HYDROXYCHLOROQUINE
     Route: 064
  202. HYDROXYCHLOROQUINE [Suspect]
     Active Substance: HYDROXYCHLOROQUINE
     Route: 064
  203. HYDROXYCHLOROQUINE [Suspect]
     Active Substance: HYDROXYCHLOROQUINE
     Route: 064
  204. HYDROXYCHLOROQUINE [Suspect]
     Active Substance: HYDROXYCHLOROQUINE
     Route: 064
  205. HYDROXYCHLOROQUINE [Suspect]
     Active Substance: HYDROXYCHLOROQUINE
     Route: 064
  206. HYDROXYCHLOROQUINE [Suspect]
     Active Substance: HYDROXYCHLOROQUINE
     Route: 064
  207. HYDROXYCHLOROQUINE [Suspect]
     Active Substance: HYDROXYCHLOROQUINE
     Route: 064
  208. ENBREL [Suspect]
     Active Substance: ETANERCEPT
     Indication: Foetal exposure during pregnancy
     Route: 064
  209. ENBREL [Suspect]
     Active Substance: ETANERCEPT
     Route: 064
  210. ENBREL [Suspect]
     Active Substance: ETANERCEPT
     Route: 064
  211. ENBREL [Suspect]
     Active Substance: ETANERCEPT
     Route: 064
  212. ENBREL [Suspect]
     Active Substance: ETANERCEPT
     Route: 064
  213. TOCILIZUMAB [Suspect]
     Active Substance: TOCILIZUMAB
     Indication: Foetal exposure during pregnancy
     Route: 064
  214. TOCILIZUMAB [Suspect]
     Active Substance: TOCILIZUMAB
     Route: 064
  215. TOCILIZUMAB [Suspect]
     Active Substance: TOCILIZUMAB
     Route: 064
  216. DICLOFENAC SODIUM [Suspect]
     Active Substance: DICLOFENAC SODIUM
     Indication: Foetal exposure during pregnancy
     Route: 064
  217. DICLOFENAC POTASSIUM [Concomitant]
     Active Substance: DICLOFENAC POTASSIUM
     Indication: Foetal exposure during pregnancy
     Route: 064
  218. DICLOFENAC POTASSIUM [Concomitant]
     Active Substance: DICLOFENAC POTASSIUM
     Route: 064
  219. TUMS ULTRA [Suspect]
     Active Substance: CALCIUM CARBONATE
     Indication: Foetal exposure during pregnancy
     Route: 064
  220. TUMS ULTRA [Suspect]
     Active Substance: CALCIUM CARBONATE
     Route: 064
  221. TUMS ULTRA [Suspect]
     Active Substance: CALCIUM CARBONATE
     Route: 064
  222. ERELZI [Suspect]
     Active Substance: ETANERCEPT-SZZS
     Indication: Foetal exposure during pregnancy
     Route: 064
  223. DESOXIMETASONE [Suspect]
     Active Substance: DESOXIMETASONE
     Indication: Foetal exposure during pregnancy
     Route: 064
  224. DESOXIMETASONE [Suspect]
     Active Substance: DESOXIMETASONE
     Route: 064
  225. DESOXIMETASONE [Suspect]
     Active Substance: DESOXIMETASONE
     Route: 064
  226. DESOXIMETASONE [Suspect]
     Active Substance: DESOXIMETASONE
     Route: 064
  227. DESOXIMETASONE [Suspect]
     Active Substance: DESOXIMETASONE
     Route: 064
  228. DESOXIMETASONE [Suspect]
     Active Substance: DESOXIMETASONE
     Route: 064
  229. DESOXIMETASONE [Suspect]
     Active Substance: DESOXIMETASONE
     Route: 064
  230. DESOXIMETASONE [Suspect]
     Active Substance: DESOXIMETASONE
     Route: 064
  231. DESOXIMETASONE [Suspect]
     Active Substance: DESOXIMETASONE
     Route: 064
  232. DESOXIMETASONE [Suspect]
     Active Substance: DESOXIMETASONE
     Route: 064
  233. DESOXIMETASONE [Suspect]
     Active Substance: DESOXIMETASONE
     Route: 064
  234. DESOXIMETASONE [Suspect]
     Active Substance: DESOXIMETASONE
     Route: 064
  235. DESOXIMETASONE [Suspect]
     Active Substance: DESOXIMETASONE
     Route: 064
  236. DESOXIMETASONE [Suspect]
     Active Substance: DESOXIMETASONE
     Route: 064
  237. DESOXIMETASONE [Suspect]
     Active Substance: DESOXIMETASONE
     Route: 064
  238. DESOXIMETASONE [Suspect]
     Active Substance: DESOXIMETASONE
     Route: 064
  239. DESOXIMETASONE [Suspect]
     Active Substance: DESOXIMETASONE
     Route: 064
  240. DESOXIMETASONE [Suspect]
     Active Substance: DESOXIMETASONE
     Route: 064
  241. DESOXIMETASONE [Suspect]
     Active Substance: DESOXIMETASONE
     Route: 064
  242. SOLU-MEDROL [Suspect]
     Active Substance: METHYLPREDNISOLONE SODIUM SUCCINATE
     Indication: Foetal exposure during pregnancy
     Route: 064
  243. METHYLPREDNISOLONE [Suspect]
     Active Substance: METHYLPREDNISOLONE
     Indication: Foetal exposure during pregnancy
     Route: 064
  244. GOLD SODIUM THIOMALATE [Suspect]
     Active Substance: GOLD SODIUM THIOMALATE
     Indication: Foetal exposure during pregnancy
     Route: 064
  245. MINOCYCLINE HYDROCHLORIDE [Suspect]
     Active Substance: MINOCYCLINE HYDROCHLORIDE
     Indication: Foetal exposure during pregnancy
     Route: 064
  246. MINOCYCLINE HYDROCHLORIDE [Suspect]
     Active Substance: MINOCYCLINE HYDROCHLORIDE
     Route: 064
  247. DEXAMETHASONE [Suspect]
     Active Substance: DEXAMETHASONE
     Indication: Foetal exposure during pregnancy
     Route: 064
  248. DEXAMETHASONE [Suspect]
     Active Substance: DEXAMETHASONE
     Route: 064
  249. DEXAMETHASONE [Suspect]
     Active Substance: DEXAMETHASONE
     Route: 064
  250. DEXAMETHASONE [Suspect]
     Active Substance: DEXAMETHASONE
     Route: 064
  251. DEXAMETHASONE [Suspect]
     Active Substance: DEXAMETHASONE
     Route: 064
  252. DEXAMETHASONE [Suspect]
     Active Substance: DEXAMETHASONE
     Route: 064
  253. SIRUKUMAB [Suspect]
     Active Substance: SIRUKUMAB
     Indication: Foetal exposure during pregnancy
     Route: 064
  254. FOLIC ACID [Suspect]
     Active Substance: FOLIC ACID
     Indication: Foetal exposure during pregnancy
     Route: 064
  255. FOLIC ACID [Suspect]
     Active Substance: FOLIC ACID
     Route: 064
  256. FOLIC ACID [Suspect]
     Active Substance: FOLIC ACID
     Route: 064
  257. FOLIC ACID [Suspect]
     Active Substance: FOLIC ACID
     Route: 064
  258. FOLIC ACID [Suspect]
     Active Substance: FOLIC ACID
     Route: 064
  259. FOLIC ACID [Suspect]
     Active Substance: FOLIC ACID
     Route: 064
  260. FOLIC ACID [Suspect]
     Active Substance: FOLIC ACID
     Route: 064
  261. FOLIC ACID [Suspect]
     Active Substance: FOLIC ACID
     Route: 064
  262. FOLIC ACID [Suspect]
     Active Substance: FOLIC ACID
     Route: 064
  263. FOLIC ACID [Suspect]
     Active Substance: FOLIC ACID
     Route: 064
  264. FOLIC ACID [Suspect]
     Active Substance: FOLIC ACID
     Route: 064
  265. FOLIC ACID [Suspect]
     Active Substance: FOLIC ACID
     Route: 064
  266. FOLIC ACID [Suspect]
     Active Substance: FOLIC ACID
     Route: 064
  267. FOLIC ACID [Suspect]
     Active Substance: FOLIC ACID
     Route: 064
  268. FOLIC ACID [Suspect]
     Active Substance: FOLIC ACID
     Route: 064
  269. NAPROXEN [Concomitant]
     Active Substance: NAPROXEN
     Indication: Foetal exposure during pregnancy
     Route: 064
  270. CALCIUM GLUBIONATE [Suspect]
     Active Substance: CALCIUM GLUBIONATE
     Indication: Foetal exposure during pregnancy
     Route: 064
  271. HYRIMOZ [Suspect]
     Active Substance: ADALIMUMAB-ADAZ
     Indication: Foetal exposure during pregnancy
     Route: 064
  272. HYRIMOZ [Suspect]
     Active Substance: ADALIMUMAB-ADAZ
     Indication: Foetal exposure during pregnancy
     Route: 064
  273. ALENDRONATE SODIUM [Suspect]
     Active Substance: ALENDRONATE SODIUM
     Indication: Foetal exposure during pregnancy
     Route: 064

REACTIONS (3)
  - Death neonatal [Fatal]
  - Foetal exposure during pregnancy [Not Recovered/Not Resolved]
  - Congenital anomaly [Not Recovered/Not Resolved]
